FAERS Safety Report 4539510-5 (Version None)
Quarter: 2004Q4

REPORT INFORMATION
  Report Type: 
  Country: None (occurrence: None)
  Receive Date: 20041227
  Receipt Date: 20041227
  Transmission Date: 20050328
  Serious: Yes (Other)
  Sender: FDA-Public Use
  Company Number: None

PATIENT
  Sex: Male
  Weight: 107.5025 kg

DRUGS (3)
  1. SYMBYAX [Suspect]
     Indication: BIPOLAR I DISORDER
     Dosage: ORAL 25/6.25
     Route: 048
     Dates: start: 20041208, end: 20041216
  2. AVANDAMET [Concomitant]
  3. TOPAMAX [Concomitant]

REACTIONS (5)
  - BRADYCARDIA [None]
  - CHEST PAIN [None]
  - DYSPNOEA [None]
  - OEDEMA PERIPHERAL [None]
  - SENSATION OF HEAVINESS [None]
